FAERS Safety Report 8247150 (Version 13)
Quarter: 2015Q2

REPORT INFORMATION
  Report Type: Report from Study
  Country: SK (occurrence: SK)
  Receive Date: 20111116
  Receipt Date: 20150626
  Transmission Date: 20150821
  Serious: Yes (Life-Threatening, Hospitalization, Other)
  Sender: FDA-Public Use
  Company Number: SK-UCBSA-045274

PATIENT
  Age: 74 Year
  Sex: Female
  Weight: 82 kg

DRUGS (39)
  1. TRITACE [Concomitant]
     Active Substance: RAMIPRIL
     Indication: HYPERTENSION
     Dosage: 2.5 MG, ONCE DAILY (QD)
  2. VINPOCETIN COVEX [Concomitant]
     Indication: ENCEPHALOPATHY
     Dosage: 5 MG, 2X/DAY (BID)
     Dates: start: 20100823, end: 20110920
  3. ALPHA D3 [Concomitant]
     Indication: OSTEOPOROSIS PROPHYLAXIS
     Dosage: 1 MG, ONCE DAILY (QD)
     Dates: start: 20110120
  4. ISICOM [Concomitant]
     Active Substance: CARBIDOPA\LEVODOPA
     Indication: PARKINSON^S DISEASE
     Dosage: 100 MG, 5X/DAY
     Dates: start: 20130528
  5. ISICOM [Concomitant]
     Active Substance: CARBIDOPA\LEVODOPA
     Dosage: 50 MG, 3X/DAY (TID)
     Dates: start: 20100927, end: 20100929
  6. ALMIRAL [Concomitant]
     Active Substance: DICLOFENAC SODIUM
     Indication: PAIN IN EXTREMITY
  7. CIPROFLOXACIN. [Concomitant]
     Active Substance: CIPROFLOXACIN
     Indication: UPPER RESPIRATORY TRACT INFECTION
     Dosage: SOLUTION
     Dates: start: 20111016, end: 201110
  8. ALMIRAL [Concomitant]
     Active Substance: DICLOFENAC SODIUM
     Indication: ARTHRALGIA
  9. AMOKSIKLAV [Suspect]
     Active Substance: AMOXICILLIN\CLAVULANATE POTASSIUM
     Indication: UPPER RESPIRATORY TRACT INFECTION
     Dosage: 1 G, 2X/DAY (BID)
     Dates: start: 20111010, end: 20111016
  10. ANOPYRIN [Concomitant]
     Active Substance: ASPIRIN
     Indication: THROMBOSIS PROPHYLAXIS
     Dosage: 100 MG, ONCE DAILY (QD)
     Dates: end: 201305
  11. MILURIT [Concomitant]
     Active Substance: ALLOPURINOL
     Indication: HYPERURICAEMIA
     Dosage: 300 MG, ONCE DAILY (QD)
  12. CAVINTON FORTE [Concomitant]
     Dosage: 10 MG, 2X/DAY (BID)
     Dates: start: 20111109
  13. ISICOM [Concomitant]
     Active Substance: CARBIDOPA\LEVODOPA
     Dosage: 100 MG, 4X/DAY (QID)
     Dates: start: 20120516, end: 20130527
  14. CIPROFLOXACIN. [Concomitant]
     Active Substance: CIPROFLOXACIN
     Indication: UPPER RESPIRATORY TRACT INFECTION
     Dosage: 500 MG, 2X/DAY (BID)
     Dates: start: 201110, end: 201110
  15. HELICID [Concomitant]
     Indication: PROPHYLAXIS
     Dosage: 20 MG, ONCE DAILY (QD)
  16. SIMVOR [Concomitant]
     Active Substance: SIMVASTATIN
     Dosage: 20 MG, ONCE DAILY (QD)
     Dates: start: 201305
  17. ISICOM [Concomitant]
     Active Substance: CARBIDOPA\LEVODOPA
     Dosage: 75 MG, 3X/DAY (TID)
     Dates: start: 20100930, end: 20101002
  18. ALMIRAL [Concomitant]
     Active Substance: DICLOFENAC SODIUM
     Indication: BACK PAIN
     Dosage: 50 MG, 2X/DAY (BID)
  19. CONCOR [Concomitant]
     Active Substance: BISOPROLOL FUMARATE
     Indication: MYOCARDIAL ISCHAEMIA
     Dosage: 2.5 MG, ONCE DAILY (QD)
  20. NOOTROPIL [Concomitant]
     Active Substance: PIRACETAM
     Indication: COGNITIVE DISORDER
     Dosage: 1.2 G, 3X/DAY (TID)
  21. SIMVOR [Concomitant]
     Active Substance: SIMVASTATIN
     Indication: HYPERCHOLESTEROLAEMIA
     Dosage: 20 MG, ONCE DAILY (QD)
     Dates: end: 201110
  22. LYRICA [Concomitant]
     Active Substance: PREGABALIN
     Indication: NEURALGIA
     Dosage: 75 MG, 2X/DAY (BID)
     Dates: start: 20100923, end: 20120814
  23. CAVINTON FORTE [Concomitant]
     Indication: ENCEPHALOPATHY
     Dosage: 10 MG, ONCE DAILY (QD)
     Dates: start: 20110921, end: 20111108
  24. CLEXANE [Concomitant]
     Active Substance: ENOXAPARIN SODIUM
     Indication: THROMBOSIS PROPHYLAXIS
     Dosage: AMPOULES
     Dates: start: 20111016, end: 201110
  25. ROTIGOTINE PD [Suspect]
     Active Substance: ROTIGOTINE
     Indication: PARKINSON^S DISEASE
     Dosage: 8 MG, ONCE DAILY (QD)
     Route: 062
     Dates: start: 20110223, end: 20111108
  26. ROTIGOTINE PD [Suspect]
     Active Substance: ROTIGOTINE
     Dosage: 6 MG, ONCE DAILY (QD)
     Route: 062
     Dates: start: 20110215, end: 20110222
  27. ROTIGOTINE PD [Suspect]
     Active Substance: ROTIGOTINE
     Dosage: 4 MG, ONCE DAILY (QD)
     Route: 062
     Dates: start: 20110208, end: 20110214
  28. ROTIGOTINE PD [Suspect]
     Active Substance: ROTIGOTINE
     Dosage: 2 MG, ONCE DAILY (QD)
     Route: 062
     Dates: start: 20110201, end: 20110207
  29. KALDYUM [Suspect]
     Active Substance: POTASSIUM CHLORIDE
     Indication: HYPOKALAEMIA
     Dosage: 600 MG, ONCE DAILY (QD)
     Dates: start: 201110, end: 201111
  30. FUROSEMID [Concomitant]
     Active Substance: FUROSEMIDE
     Indication: CHRONIC KIDNEY DISEASE
     Dosage: 20 MG, WEEKLY (QW)
     Dates: end: 201305
  31. NEBILET [Concomitant]
     Active Substance: NEBIVOLOL
     Indication: HYPERTENSION
     Dosage: 2.5 MG, ONCE DAILY (QD)
  32. COSTI [Concomitant]
     Indication: PROPHYLAXIS
     Dosage: 10 MG, 3X/DAY (TID)
     Dates: start: 20100921, end: 20121114
  33. ISICOM [Concomitant]
     Active Substance: CARBIDOPA\LEVODOPA
     Dosage: 100 MG, 3X/DAY (TID)
     Dates: start: 20120221, end: 20120515
  34. ISICOM [Concomitant]
     Active Substance: CARBIDOPA\LEVODOPA
     Dosage: 100 MG, 4X/DAY (QID)
     Dates: start: 20110121, end: 20120220
  35. HUMULIN R [Concomitant]
     Active Substance: INSULIN HUMAN
     Indication: DIABETES MELLITUS
     Dosage: AMPOULES
     Dates: start: 201110, end: 201110
  36. FUROSEMID [Concomitant]
     Active Substance: FUROSEMIDE
     Dosage: 20 MG, 2X/DAY (BID)
     Dates: start: 201305
  37. AMICLOTON [Concomitant]
     Indication: HYPERTENSION
     Dosage: 2.84 MG, ONCE DAILY (QD)
     Dates: end: 20111016
  38. ISICOM [Concomitant]
     Active Substance: CARBIDOPA\LEVODOPA
     Dosage: 100 MG, 3X/DAY (TID)
     Dates: start: 20101003, end: 20110120
  39. ISICOM [Concomitant]
     Active Substance: CARBIDOPA\LEVODOPA
     Dosage: 25 MG, 3X/DAY (TID)
     Dates: start: 20100923, end: 20100926

REACTIONS (2)
  - Acute kidney injury [Recovered/Resolved]
  - Dehydration [Recovered/Resolved]

NARRATIVE: CASE EVENT DATE: 20111016
